FAERS Safety Report 4505983-7 (Version None)
Quarter: 2004Q4

REPORT INFORMATION
  Report Type: 
  Country: None (occurrence: None)
  Receive Date: 20041025
  Receipt Date: 20031013
  Transmission Date: 20050328
  Serious: Yes (Other)
  Sender: FDA-Public Use
  Company Number: US-JNJFOC-20031000165

PATIENT
  Age: 33 Year
  Sex: Female
  Weight: 78.9259 kg

DRUGS (7)
  1. REMICADE [Suspect]
     Indication: RHEUMATOID ARTHRITIS
     Dosage: 500 MG, INTRAVENOUS
     Route: 042
     Dates: start: 20030929
  2. APAP (PARACETAMOL) [Concomitant]
  3. ALLEGRA (FRXOFENADINE HYDROCHLORIDE) [Concomitant]
  4. METHOTREXATE [Concomitant]
  5. PLAQUENIL [Concomitant]
  6. CELEBREX [Concomitant]
  7. FOLATE (FOLATE SODIUM) [Concomitant]

REACTIONS (5)
  - CHEST DISCOMFORT [None]
  - DYSPNOEA [None]
  - OROPHARYNGEAL SWELLING [None]
  - PRURITUS [None]
  - URINARY INCONTINENCE [None]
